FAERS Safety Report 5050744-6 (Version None)
Quarter: 2006Q3

REPORT INFORMATION
  Report Type: 
  Country: None (occurrence: None)
  Receive Date: 20060707
  Receipt Date: 20060621
  Transmission Date: 20061208
  Serious: Yes (Other)
  Sender: FDA-Public Use
  Company Number: S06-FRA-02618-01

PATIENT
  Age: 64 Year
  Sex: Female

DRUGS (6)
  1. SEROPLEX (ESCITALOPRAM) [Suspect]
     Dosage: 20 MG QD PO
     Route: 048
     Dates: start: 20060620, end: 20060620
  2. BUSPAR [Concomitant]
  3. VALACYCLOVIR [Concomitant]
  4. LEVOTHYROXINE SODIUM [Concomitant]
  5. IMODIUM [Concomitant]
  6. ZOLPIDEM TARTRATE [Concomitant]

REACTIONS (2)
  - CONVULSION [None]
  - MALAISE [None]
